FAERS Safety Report 12346577 (Version 1)
Quarter: 2016Q2

REPORT INFORMATION
  Report Type: Spontaneous
  Country: FR (occurrence: FR)
  Receive Date: 20160509
  Receipt Date: 20160509
  Transmission Date: 20160815
  Serious: Yes (Other)
  Sender: FDA-Public Use
  Company Number: FR-ACORDA-ACO_123572_2016

PATIENT
  Sex: Male

DRUGS (2)
  1. QUTENZA [Suspect]
     Active Substance: CAPSAICIN
     Indication: PRODUCT USED FOR UNKNOWN INDICATION
     Dosage: UNK, UNKNOWN FREQ
     Route: 065
  2. QUTENZA [Suspect]
     Active Substance: CAPSAICIN
     Dosage: UNK, UNKNOWN FREQ
     Route: 065
     Dates: start: 201603, end: 201603

REACTIONS (2)
  - Application site vesicles [Unknown]
  - Application site burn [Unknown]
